FAERS Safety Report 16751018 (Version 1)
Quarter: 2019Q3

REPORT INFORMATION
  Report Type: Spontaneous
  Country: AR (occurrence: AR)
  Receive Date: 20190828
  Receipt Date: 20190828
  Transmission Date: 20191005
  Serious: Yes (Other)
  Sender: FDA-Public Use
  Company Number: AR-PFIZER INC-2019367809

PATIENT
  Age: 73 Year
  Sex: Female

DRUGS (1)
  1. XELJANZ [Suspect]
     Active Substance: TOFACITINIB CITRATE
     Indication: RHEUMATOID ARTHRITIS
     Dosage: 5 MG, 2X/DAY
     Dates: start: 20181206

REACTIONS (8)
  - Malaise [Recovering/Resolving]
  - Drug ineffective [Recovering/Resolving]
  - Pyrexia [Recovering/Resolving]
  - Chest X-ray abnormal [Recovering/Resolving]
  - Pneumonia [Recovering/Resolving]
  - Traumatic lung injury [Recovering/Resolving]
  - Cyanosis [Recovering/Resolving]
  - Pain [Recovering/Resolving]

NARRATIVE: CASE EVENT DATE: 201907
